FAERS Safety Report 6088422-7 (Version None)
Quarter: 2009Q1

REPORT INFORMATION
  Report Type: 
  Country: None (occurrence: None)
  Receive Date: 20090224
  Receipt Date: 20090211
  Transmission Date: 20090719
  Serious: Yes (Hospitalization)
  Sender: FDA-Public Use
  Company Number: FR-PFIZER INC-2009172144

PATIENT

DRUGS (5)
  1. ZOLOFT [Suspect]
     Route: 048
     Dates: end: 20090115
  2. DIAZEPAM [Suspect]
     Route: 048
     Dates: end: 20090115
  3. ESPERAL [Suspect]
     Route: 048
     Dates: end: 20090115
  4. TERCIAN [Suspect]
     Route: 048
     Dates: end: 20090115
  5. ZOPICLONE [Concomitant]

REACTIONS (1)
  - ELECTROCARDIOGRAM ST SEGMENT ELEVATION [None]
